FAERS Safety Report 25196340 (Version 1)
Quarter: 2025Q2

REPORT INFORMATION
  Report Type: Spontaneous
  Country: CA (occurrence: CA)
  Receive Date: 20250415
  Receipt Date: 20250415
  Transmission Date: 20250716
  Serious: Yes (Life-Threatening)
  Sender: MERCK SHARP AND DOHME
  Company Number: CA-009507513-2274008

PATIENT
  Age: 8 Year
  Sex: Male
  Weight: 20 kg

DRUGS (6)
  1. POSACONAZOLE [Suspect]
     Active Substance: POSACONAZOLE
     Indication: Prophylaxis
     Route: 048
  2. POSACONAZOLE [Suspect]
     Active Substance: POSACONAZOLE
     Indication: Prophylaxis
     Route: 048
  3. POSACONAZOLE [Suspect]
     Active Substance: POSACONAZOLE
     Indication: Prophylaxis
     Route: 048
  4. LIVTENCITY [Concomitant]
     Active Substance: MARIBAVIR
  5. TACROLIMUS [Concomitant]
     Active Substance: TACROLIMUS
  6. VALGANCICLOVIR [Concomitant]
     Active Substance: VALGANCICLOVIR

REACTIONS (1)
  - Supraventricular extrasystoles [Unknown]
